FAERS Safety Report 24885123 (Version 2)
Quarter: 2025Q1

REPORT INFORMATION
  Report Type: Spontaneous
  Country: NL (occurrence: NL)
  Receive Date: 20250124
  Receipt Date: 20250218
  Transmission Date: 20250409
  Serious: Yes (Other)
  Sender: COVIS PHARMA GMBH
  Company Number: None

PATIENT
  Age: 5 Year
  Sex: Male
  Weight: 85 kg

DRUGS (4)
  1. ALVESCO [Suspect]
     Active Substance: CICLESONIDE
     Indication: Allergic bronchitis
     Dosage: 2X DAAGS 2 PUFJES
     Route: 055
     Dates: start: 20150101
  2. PREDNISOLONE [Suspect]
     Active Substance: PREDNISOLONE
     Indication: Bronchitis chronic
     Route: 048
     Dates: start: 19580101
  3. PREDNISOLONE [Suspect]
     Active Substance: PREDNISOLONE
     Indication: Dermatitis atopic
  4. LEVOCABASTINE [Concomitant]
     Active Substance: LEVOCABASTINE
     Route: 047

REACTIONS (3)
  - Glaucoma [Recovering/Resolving]
  - Haematoma [Recovering/Resolving]
  - Depressed mood [Recovering/Resolving]
